FAERS Safety Report 10409933 (Version 1)
Quarter: 2014Q2

REPORT INFORMATION
  Report Type: Spontaneous
  Country: US (occurrence: None)
  Receive Date: 20140604
  Receipt Date: 20140604
  Transmission Date: 20141212
  Serious: No
  Sender: FDA-Public Use
  Company Number: 163-POMAL-14041514

PATIENT
  Age: 56 Year
  Sex: Female

DRUGS (1)
  1. POMALYST (POMALIDOMIDE) (2 MILLIGRAM, CAPSULES) [Suspect]
     Indication: PLASMA CELL MYELOMA
     Dosage: 2 MG, 1 IN 2 D, PO
     Route: 048
     Dates: start: 20140314

REACTIONS (3)
  - Gastritis [None]
  - Insomnia [None]
  - Headache [None]
